FAERS Safety Report 9890942 (Version 1)
Quarter: 2014Q1

REPORT INFORMATION
  Report Type: Spontaneous
  Country: FR (occurrence: None)
  Receive Date: 20140210
  Receipt Date: 20140210
  Transmission Date: 20141002
  Serious: Yes (Other)
  Sender: FDA-Public Use
  Company Number: SYM-2014-16149

PATIENT
  Age: 54 Year
  Sex: Female

DRUGS (6)
  1. FLAGYL [Suspect]
     Indication: TOOTH DISORDER
     Dosage: 1 UNIT
     Route: 048
     Dates: start: 201303, end: 201303
  2. CLAMOXYL (AMOXICILLIN) [Suspect]
     Indication: TOOTH DISORDER
     Route: 048
     Dates: start: 201303, end: 201303
  3. FLECAINE [Concomitant]
  4. TANGANIL [Concomitant]
  5. LAROXYL [Concomitant]
  6. BISOPROLOL [Concomitant]

REACTIONS (5)
  - Anaphylactic reaction [None]
  - Erythema [None]
  - Abdominal pain [None]
  - Malaise [None]
  - Hypotension [None]
